FAERS Safety Report 5163028-2 (Version None)
Quarter: 2006Q4

REPORT INFORMATION
  Report Type: 
  Country: None (occurrence: None)
  Receive Date: 20061201
  Receipt Date: 20061121
  Transmission Date: 20070319
  Serious: Yes (Other)
  Sender: FDA-Public Use
  Company Number: BE-ABBOTT-06P-013-0351242-00

PATIENT
  Sex: Male
  Weight: 71 kg

DRUGS (2)
  1. HUMIRA [Suspect]
     Indication: ANKYLOSING SPONDYLITIS
     Route: 058
     Dates: start: 20061028, end: 20061110
  2. VALORON N [Concomitant]
     Indication: MUSCULOSKELETAL PAIN
     Dosage: 10-20 DROPS
     Dates: start: 20050101

REACTIONS (1)
  - BLINDNESS UNILATERAL [None]
